FAERS Safety Report 8107720-6 (Version None)
Quarter: 2012Q1

REPORT INFORMATION
  Report Type: 
  Country: None (occurrence: None)
  Receive Date: 20120202
  Receipt Date: 20120125
  Transmission Date: 20120608
  Serious: Yes (Hospitalization)
  Sender: FDA-Public Use
  Company Number: US-JNJFOC-20120111014

PATIENT
  Age: 70 Year
  Sex: Male

DRUGS (2)
  1. NUCYNTA ER [Suspect]
     Indication: PAIN
     Route: 048
  2. NUCYNTA ER [Suspect]
     Indication: PAIN
     Route: 048

REACTIONS (4)
  - FEELING DRUNK [None]
  - INCORRECT DOSE ADMINISTERED [None]
  - SEROTONIN SYNDROME [None]
  - PAIN [None]
